FAERS Safety Report 15255323 (Version 1)
Quarter: 2018Q3

REPORT INFORMATION
  Report Type: Spontaneous
  Country: US (occurrence: US)
  Receive Date: 20180808
  Receipt Date: 20180808
  Transmission Date: 20181010
  Serious: No
  Sender: FDA-Public Use
  Company Number: US-PFIZER INC-2018316697

PATIENT
  Age: 68 Year
  Sex: Female
  Weight: 52 kg

DRUGS (2)
  1. XALATAN [Suspect]
     Active Substance: LATANOPROST
     Indication: GLAUCOMA
     Dosage: UNK
     Dates: start: 20100428, end: 201106
  2. LATANOPROST. [Suspect]
     Active Substance: LATANOPROST
     Indication: GLAUCOMA
     Dosage: UNK
     Dates: start: 20110505, end: 20120109

REACTIONS (12)
  - Allergic reaction to excipient [Recovered/Resolved]
  - Drug hypersensitivity [Recovered/Resolved]
  - Conjunctivitis [Recovered/Resolved]
  - Eyelid oedema [Recovered/Resolved]
  - Vision blurred [Recovered/Resolved]
  - Ocular hyperaemia [Recovered/Resolved]
  - Corneal abrasion [Recovered/Resolved]
  - Blepharitis [Recovered/Resolved]
  - Eye swelling [Recovered/Resolved]
  - Eye oedema [Recovered/Resolved]
  - Sinus disorder [Recovered/Resolved]
  - Asthenopia [Recovered/Resolved]

NARRATIVE: CASE EVENT DATE: 2010
